FAERS Safety Report 16777836 (Version 1)
Quarter: 2019Q3

REPORT INFORMATION
  Report Type: Report from Study
  Country: US (occurrence: US)
  Receive Date: 20190905
  Receipt Date: 20190905
  Transmission Date: 20191005
  Serious: No
  Sender: FDA-Public Use
  Company Number: US-EMD SERONO-9102681

PATIENT
  Sex: Female
  Weight: 64 kg

DRUGS (1)
  1. MAVENCLAD [Suspect]
     Active Substance: CLADRIBINE
     Indication: MULTIPLE SCLEROSIS
     Dosage: FIRST WEEK THERAPY: THE TOTAL PRESCRIBED MAVENCLAD DOSE FOR THE INITIAL 5 DAYS WAS 60 MG
     Route: 048
     Dates: start: 20190628

REACTIONS (1)
  - Abdominal discomfort [Unknown]
